FAERS Safety Report 13415230 (Version 2)
Quarter: 2017Q2

REPORT INFORMATION
  Report Type: Spontaneous
  Country: US (occurrence: US)
  Receive Date: 20170406
  Receipt Date: 20170414
  Transmission Date: 20170830
  Serious: Yes (Other)
  Sender: FDA-Public Use
  Company Number: US-SAOL THERAPEUTICS-2017SAO00621

PATIENT
  Sex: Female
  Weight: 61.22 kg

DRUGS (2)
  1. BACLOFEN. [Suspect]
     Active Substance: BACLOFEN
     Indication: MUSCLE SPASTICITY
     Route: 037
  2. BACLOFEN. [Suspect]
     Active Substance: BACLOFEN
     Indication: MULTIPLE SCLEROSIS

REACTIONS (5)
  - Muscle spasticity [Recovered/Resolved]
  - Delusion [Recovered/Resolved]
  - Device failure [Unknown]
  - Overdose [Recovered/Resolved]
  - Drug dose omission [Unknown]
